FAERS Safety Report 12198029 (Version 1)
Quarter: 2016Q1

REPORT INFORMATION
  Report Type: Spontaneous
  Country: US (occurrence: None)
  Receive Date: 20160321
  Receipt Date: 20160321
  Transmission Date: 20160526
  Serious: Yes (Other)
  Sender: FDA-Public Use
  Company Number: None

PATIENT
  Age: 60 Year
  Sex: Female
  Weight: 74.84 kg

DRUGS (2)
  1. PRILOSEC [Suspect]
     Active Substance: OMEPRAZOLE MAGNESIUM
     Indication: GASTROOESOPHAGEAL REFLUX DISEASE
     Dosage: TWO PILLS TWICE DAILY TAKEN BY MOUTH
     Route: 048
     Dates: start: 20080330, end: 20160319
  2. SYNVISC [Suspect]
     Active Substance: HYALURONATE SODIUM
     Indication: ARTHRITIS
     Dosage: X5 TWO WEEK INTERV KNEE INJECTION
     Dates: start: 20130415, end: 20130615

REACTIONS (3)
  - Fatigue [None]
  - Colitis microscopic [None]
  - Incontinence [None]
